FAERS Safety Report 14334327 (Version 3)
Quarter: 2018Q2

REPORT INFORMATION
  Report Type: Report from Study
  Country: FR (occurrence: FR)
  Receive Date: 20171228
  Receipt Date: 20180419
  Transmission Date: 20180711
  Serious: Yes (Hospitalization)
  Sender: FDA-Public Use
  Company Number: MQ-VIIV HEALTHCARE LIMITED-FR2017GSK199325

PATIENT
  Age: 26 Year
  Sex: Female

DRUGS (6)
  1. TARDYFERON [Concomitant]
     Active Substance: FERROUS SULFATE
     Indication: PREGNANCY
     Dosage: 80 UNK, QD
     Dates: start: 20141203, end: 20151026
  2. PREZISTA [Suspect]
     Active Substance: DARUNAVIR ETHANOLATE
     Indication: HIV INFECTION
     Dosage: 800 UNK, QD
     Dates: start: 20150521, end: 20150918
  3. SPECIAFOLDINE [Concomitant]
     Active Substance: FOLIC ACID
     Indication: PREGNANCY
     Dosage: 10 UNK, QD
     Dates: start: 20141203, end: 20151026
  4. DOLUTEGRAVIR [Suspect]
     Active Substance: DOLUTEGRAVIR
     Indication: HIV INFECTION
     Dosage: 50 MG, 1D
     Route: 048
     Dates: start: 20150814, end: 20160729
  5. NORVIR [Suspect]
     Active Substance: RITONAVIR
     Indication: HIV INFECTION
     Dosage: 100 UNK, QD
     Dates: start: 20150317, end: 20150918
  6. KIVEXA [Suspect]
     Active Substance: ABACAVIR SULFATE\LAMIVUDINE
     Indication: HIV INFECTION
     Dosage: 900 UNK, QD
     Dates: start: 20150317, end: 20160729

REACTIONS (3)
  - Exposure during pregnancy [Unknown]
  - Virologic failure [Unknown]
  - Live birth [Unknown]

NARRATIVE: CASE EVENT DATE: 20150912
